FAERS Safety Report 6667814-9 (Version None)
Quarter: 2010Q2

REPORT INFORMATION
  Report Type: 
  Country: None (occurrence: None)
  Receive Date: 20100401
  Receipt Date: 20100329
  Transmission Date: 20101027
  Serious: Yes (Other)
  Sender: FDA-Public Use
  Company Number: VISP-NO-1003S-0161

PATIENT
  Age: 60 Year
  Sex: Female

DRUGS (5)
  1. VISIPAQUE [Suspect]
     Indication: DRUG USE FOR UNKNOWN INDICATION
     Dosage: SINGLE DOSE
     Dates: start: 20100316, end: 20100316
  2. PREDNISONA [Suspect]
     Indication: ALLERGY PROPHYLAXIS
     Dates: start: 20100316, end: 20100316
  3. POLARAMINE [Concomitant]
  4. ATENOLOL (BLOKIUM-DIU) [Concomitant]
  5. ACETYLSALICYLIC ACID SRT [Concomitant]

REACTIONS (1)
  - HALLUCINATION [None]
